FAERS Safety Report 10468514 (Version 1)
Quarter: 2014Q3

REPORT INFORMATION
  Report Type: Report from Study
  Country: VE (occurrence: VE)
  Receive Date: 20140922
  Receipt Date: 20140922
  Transmission Date: 20150326
  Serious: Yes (Hospitalization)
  Sender: FDA-Public Use
  Company Number: PHHY2014VE118873

PATIENT
  Sex: Female

DRUGS (1)
  1. TASIGNA [Suspect]
     Active Substance: NILOTINIB
     Indication: CHRONIC MYELOID LEUKAEMIA
     Dosage: 400 MG, QD
     Route: 048

REACTIONS (5)
  - Abortion spontaneous [Recovered/Resolved with Sequelae]
  - Leukaemia recurrent [Recovered/Resolved]
  - Blood iron decreased [Recovered/Resolved with Sequelae]
  - Haemoglobin decreased [Recovered/Resolved with Sequelae]
  - Maternal exposure during pregnancy [Unknown]
